FAERS Safety Report 4772701-7 (Version None)
Quarter: 2005Q3

REPORT INFORMATION
  Report Type: 
  Country: None (occurrence: None)
  Receive Date: 20050915
  Receipt Date: 20050915
  Transmission Date: 20060218
  Serious: Yes (Hospitalization)
  Sender: FDA-Public Use
  Company Number: None

PATIENT
  Sex: Male
  Weight: 78.4723 kg

DRUGS (6)
  1. HCTZ (HYDROCHLOROTHIAZIDE) [Suspect]
     Indication: HYPERTENSION
     Dosage: 25 MG QD
  2. LOSARTAN POTASSIUM [Concomitant]
  3. NITROGLYCERIN [Concomitant]
  4. FOLIC ACID [Concomitant]
  5. FESO4 [Concomitant]
  6. METFORMIN [Concomitant]

REACTIONS (2)
  - HAEMATOCRIT DECREASED [None]
  - HAEMOGLOBIN DECREASED [None]
